FAERS Safety Report 13690942 (Version 1)
Quarter: 2017Q2

REPORT INFORMATION
  Report Type: Spontaneous
  Country: BE (occurrence: BE)
  Receive Date: 20170626
  Receipt Date: 20170626
  Transmission Date: 20170830
  Serious: Yes (Hospitalization)
  Sender: FDA-Public Use
  Company Number: BE-MYLANLABS-2017M1037969

PATIENT

DRUGS (1)
  1. BICLAR KIDS 250 MG/5 ML - GRANUL?S POUR SUSPENSION BUVABLE [Suspect]
     Active Substance: CLARITHROMYCIN
     Indication: PRODUCT USED FOR UNKNOWN INDICATION
     Dosage: UNK
     Route: 048

REACTIONS (2)
  - Eyelid oedema [Unknown]
  - Urticaria [Unknown]
